APPROVED DRUG PRODUCT: PROPRANOLOL HYDROCHLORIDE
Active Ingredient: PROPRANOLOL HYDROCHLORIDE
Strength: 1MG/ML
Dosage Form/Route: INJECTABLE;INJECTION
Application: A075792 | Product #001
Applicant: CHARTWELL INJECTABLES LLC
Approved: Aug 29, 2000 | RLD: No | RS: No | Type: DISCN